FAERS Safety Report 13965854 (Version 2)
Quarter: 2017Q4

REPORT INFORMATION
  Report Type: Report from Study
  Country: AU (occurrence: AU)
  Receive Date: 20170913
  Receipt Date: 20171004
  Transmission Date: 20180320
  Serious: Yes (Other)
  Sender: FDA-Public Use
  Company Number: AU-REGENERON PHARMACEUTICALS, INC.-2017-21962

PATIENT

DRUGS (2)
  1. EYLEA [Suspect]
     Active Substance: AFLIBERCEPT
     Dosage: Q1MON, DOSE WAS NOT REPORTED
     Route: 047
     Dates: start: 201708
  2. EYLEA [Suspect]
     Active Substance: AFLIBERCEPT
     Indication: NEOVASCULAR AGE-RELATED MACULAR DEGENERATION
     Dosage: Q1MON, DOSE WAS NOT REPORTED
     Route: 047
     Dates: start: 20161101, end: 20161101

REACTIONS (1)
  - Neovascular age-related macular degeneration [Unknown]
